FAERS Safety Report 5632118-X (Version None)
Quarter: 2008Q1

REPORT INFORMATION
  Report Type: 
  Country: None (occurrence: None)
  Receive Date: 20080220
  Receipt Date: 20080214
  Transmission Date: 20080703
  Serious: Yes (Hospitalization)
  Sender: FDA-Public Use
  Company Number: B0508932A

PATIENT
  Age: 6 Year
  Sex: Male

DRUGS (2)
  1. AUGMENTIN '125' [Suspect]
     Route: 048
     Dates: start: 20080118, end: 20080120
  2. NUREFLEX [Suspect]
     Route: 048
     Dates: start: 20080118, end: 20080120

REACTIONS (4)
  - ABDOMINAL PAIN UPPER [None]
  - DIARRHOEA [None]
  - NAUSEA [None]
  - VOMITING [None]
